FAERS Safety Report 4632889-5 (Version None)
Quarter: 2005Q2

REPORT INFORMATION
  Report Type: 
  Country: None (occurrence: None)
  Receive Date: 20050411
  Receipt Date: 20050411
  Transmission Date: 20051028
  Serious: Yes (Other)
  Sender: FDA-Public Use
  Company Number: None

PATIENT
  Sex: Male
  Weight: 113.3993 kg

DRUGS (1)
  1. BEXTRA [Suspect]
     Dosage: MOUTH
     Route: 048

REACTIONS (16)
  - CONTUSION [None]
  - FATIGUE [None]
  - FEELING ABNORMAL [None]
  - FEELING HOT [None]
  - IMPAIRED WORK ABILITY [None]
  - INSOMNIA [None]
  - MASS [None]
  - OEDEMA PERIPHERAL [None]
  - PAIN [None]
  - PURULENCE [None]
  - RASH PAPULAR [None]
  - SCAB [None]
  - SCAR [None]
  - SKIN ULCER [None]
  - TENDONITIS [None]
  - THROMBOPHLEBITIS [None]
